FAERS Safety Report 7768087-6 (Version None)
Quarter: 2011Q3

REPORT INFORMATION
  Report Type: 
  Country: None (occurrence: None)
  Receive Date: 20110922
  Receipt Date: 20110919
  Transmission Date: 20111222
  Serious: Yes (Congenital Anomaly, Other)
  Sender: FDA-Public Use
  Company Number: US-PFIZER INC-2011089786

PATIENT
  Sex: Male

DRUGS (7)
  1. OXYMETAZOLINE [Concomitant]
     Dosage: 0.05 %, UNK
     Route: 064
  2. ZOLOFT [Suspect]
     Dosage: 100 MG, UNK
     Route: 064
  3. GUAIFENESIN W/DEXTROMETHORPHAN [Concomitant]
     Dosage: GUAIFENESIN 600 MG PLUS DEXTROMETHORPHAN 30 MG
     Route: 064
  4. IBUPROFEN [Concomitant]
     Dosage: 80 MG, UNK
     Route: 064
  5. ZOLOFT [Suspect]
     Indication: INSOMNIA
     Dosage: 50 MG, UNK
     Route: 064
  6. PRENATAL VITAMINS [Concomitant]
     Dosage: 27MG-1 MG
     Route: 064
  7. OXYCODONE AND ACETAMINOPHEN [Concomitant]
     Dosage: 5 MG-325 MG
     Route: 064

REACTIONS (5)
  - VENTRICULAR SEPTAL DEFECT [None]
  - TRICUSPID VALVE INCOMPETENCE [None]
  - MATERNAL EXPOSURE DURING PREGNANCY [None]
  - TRANSPOSITION OF THE GREAT VESSELS [None]
  - TRISOMY 18 [None]
